FAERS Safety Report 8417499-6 (Version None)
Quarter: 2012Q2

REPORT INFORMATION
  Report Type: 
  Country: None (occurrence: None)
  Receive Date: 20120606
  Receipt Date: 20120529
  Transmission Date: 20120825
  Serious: No
  Sender: FDA-Public Use
  Company Number: US-B.I. PHARMACEUTICALS,INC./RIDGEFIELD-2012-BP-12571BP

PATIENT
  Age: 77 Year
  Sex: Male

DRUGS (8)
  1. OMEPRAZOLE [Concomitant]
  2. PROPAFENONE HCL [Concomitant]
  3. LEVOTHYROXINE SODIUM [Concomitant]
  4. PRADAXA [Suspect]
     Indication: CEREBROVASCULAR ACCIDENT PROPHYLAXIS
     Dosage: 300 MG
     Route: 048
     Dates: start: 20101101
  5. ASPIRIN [Concomitant]
  6. ATENOLOL [Concomitant]
  7. PRADAXA [Suspect]
     Indication: ATRIAL FIBRILLATION
  8. CLOPIDOGREL [Concomitant]

REACTIONS (3)
  - FATIGUE [None]
  - DYSPNOEA [None]
  - ASTHENIA [None]
